APPROVED DRUG PRODUCT: DOXORUBICIN HYDROCHLORIDE
Active Ingredient: DOXORUBICIN HYDROCHLORIDE
Strength: 20MG/10ML (2MG/ML)
Dosage Form/Route: INJECTABLE, LIPOSOMAL;INJECTION
Application: A219881 | Product #001 | TE Code: AB
Applicant: QILU PHARMACEUTICAL HAINAN CO LTD
Approved: Feb 3, 2026 | RLD: No | RS: No | Type: RX